FAERS Safety Report 4405292-0 (Version None)
Quarter: 2004Q3

REPORT INFORMATION
  Report Type: 
  Country: None (occurrence: None)
  Receive Date: 20040716
  Receipt Date: 20040706
  Transmission Date: 20050211
  Serious: No
  Sender: FDA-Public Use
  Company Number: 2004SE03836

PATIENT
  Age: 65 Year
  Sex: Female
  Weight: 52 kg

DRUGS (7)
  1. BLOPRESS [Suspect]
     Indication: HYPERTENSION
     Dosage: 8 MG QD PO
     Route: 048
     Dates: start: 20020201, end: 20020214
  2. ATENOLOL [Concomitant]
  3. ATENOLOL [Concomitant]
  4. ATENOLOL [Concomitant]
  5. SIMVASTATIN [Concomitant]
  6. BUFFERIN [Concomitant]
  7. NORVASC [Concomitant]

REACTIONS (4)
  - BRAIN NATRIURETIC PEPTIDE INCREASED [None]
  - CARDIAC FAILURE [None]
  - CARDIOMEGALY [None]
  - PULMONARY CONGESTION [None]
